FAERS Safety Report 25163223 (Version 1)
Quarter: 2025Q2

REPORT INFORMATION
  Report Type: Spontaneous
  Country: US (occurrence: US)
  Receive Date: 20250404
  Receipt Date: 20250404
  Transmission Date: 20250716
  Serious: No
  Sender: LANNETT
  Company Number: LANN2401514

PATIENT
  Sex: Female

DRUGS (1)
  1. SUMATRIPTAN [Suspect]
     Active Substance: SUMATRIPTAN
     Indication: Migraine
     Route: 045

REACTIONS (6)
  - Migraine [Unknown]
  - Nasal congestion [Unknown]
  - Insomnia [Unknown]
  - Muscle tightness [Unknown]
  - Drug ineffective [Unknown]
  - Complication associated with device [Unknown]

NARRATIVE: CASE EVENT DATE: 20240221
